FAERS Safety Report 16500517 (Version 2)
Quarter: 2019Q3

REPORT INFORMATION
  Report Type: Spontaneous
  Country: US (occurrence: US)
  Receive Date: 20190701
  Receipt Date: 20190702
  Transmission Date: 20191004
  Serious: Yes (Death, Life-Threatening, Hospitalization, Other)
  Sender: FDA-Public Use
  Company Number: US-ASTRAZENECA-2019SE93608

PATIENT
  Age: 47 Year
  Sex: Female

DRUGS (1)
  1. BRILINTA [Suspect]
     Active Substance: TICAGRELOR
     Indication: STENT PLACEMENT
     Dosage: UNKNOWN DOSE
     Route: 048
     Dates: start: 2017

REACTIONS (4)
  - Angina unstable [Not Recovered/Not Resolved]
  - Death [Fatal]
  - Cardiogenic shock [Not Recovered/Not Resolved]
  - Product dose omission [Not Recovered/Not Resolved]
